FAERS Safety Report 9049699 (Version 1)
Quarter: 2013Q1

REPORT INFORMATION
  Report Type: Spontaneous
  Country: US (occurrence: US)
  Receive Date: 20130205
  Receipt Date: 20130205
  Transmission Date: 20140127
  Serious: Yes (Hospitalization, Other)
  Sender: FDA-Public Use
  Company Number: US-AMGEN-USASP2013006763

PATIENT
  Age: 64 Year
  Sex: Female

DRUGS (1)
  1. ENBREL [Suspect]
     Indication: RHEUMATOID ARTHRITIS
     Dosage: 50 MG, QWK
     Route: 058
     Dates: start: 20110112

REACTIONS (7)
  - Post procedural haemorrhage [Unknown]
  - Peritonitis [Unknown]
  - Cholecystectomy [Unknown]
  - Amnesia [Unknown]
  - Gait disturbance [Unknown]
  - Diarrhoea [Unknown]
  - Arthritis [Unknown]
